FAERS Safety Report 25795805 (Version 1)
Quarter: 2025Q3

REPORT INFORMATION
  Report Type: Spontaneous
  Country: EU (occurrence: EU)
  Receive Date: 20250912
  Receipt Date: 20250912
  Transmission Date: 20251020
  Serious: Yes (Life-Threatening, Hospitalization, Other)
  Sender: HIKMA
  Company Number: None

PATIENT
  Age: 69 Year
  Sex: Male
  Weight: 81 kg

DRUGS (4)
  1. IRINOTECAN [Suspect]
     Active Substance: IRINOTECAN
     Indication: Colon cancer metastatic
     Route: 042
     Dates: start: 20250812, end: 20250812
  2. FLUOROURACIL [Concomitant]
     Active Substance: FLUOROURACIL
     Indication: Chemotherapy
     Route: 042
     Dates: start: 20250812
  3. LEUCOVORIN [Concomitant]
     Active Substance: LEUCOVORIN\LEUCOVORIN CALCIUM
     Indication: Chemotherapy
     Route: 042
     Dates: start: 20250812
  4. VECTIBIX [Concomitant]
     Active Substance: PANITUMUMAB
     Indication: Colon cancer
     Route: 042
     Dates: start: 20250812, end: 20250812

REACTIONS (3)
  - Bronchospasm [Unknown]
  - Drug hypersensitivity [Unknown]
  - Dyspnoea [Unknown]

NARRATIVE: CASE EVENT DATE: 20250812
